FAERS Safety Report 7109979-0 (Version None)
Quarter: 2010Q4

REPORT INFORMATION
  Report Type: 
  Country: None (occurrence: None)
  Receive Date: 20101118
  Receipt Date: 20101115
  Transmission Date: 20110411
  Serious: Yes (Other)
  Sender: FDA-Public Use
  Company Number: US-BRISTOL-MYERS SQUIBB COMPANY-15388838

PATIENT
  Age: 65 Year
  Sex: Female

DRUGS (2)
  1. ONGLYZA [Suspect]
     Dosage: FOR 2-3MONTHS
  2. GLYBURIDE [Concomitant]

REACTIONS (1)
  - CARDIAC FAILURE [None]
